FAERS Safety Report 7310945-0 (Version None)
Quarter: 2011Q1

REPORT INFORMATION
  Report Type: 
  Country: None (occurrence: None)
  Receive Date: 20110224
  Receipt Date: 20110214
  Transmission Date: 20110831
  Serious: Yes (Other)
  Sender: FDA-Public Use
  Company Number: PHHY2011US09982

PATIENT
  Sex: Male

DRUGS (6)
  1. TIZANIDINE [Concomitant]
     Indication: MUSCLE SPASMS
     Dosage: 8 MG, QHS
     Route: 048
  2. GILENYA [Suspect]
     Indication: RELAPSING-REMITTING MULTIPLE SCLEROSIS
     Dosage: 0.5 MG, QD
     Route: 048
     Dates: start: 20110119, end: 20110126
  3. BACLOFEN [Concomitant]
     Indication: MULTIPLE SCLEROSIS
     Dosage: 20 MG , FOUR TO FIVE TIMES A DAY
     Route: 048
  4. GILENYA [Suspect]
     Dosage: 0.5 MG, QD
     Route: 048
     Dates: start: 20110210
  5. VITAMIN D [Concomitant]
     Indication: VITAMIN D DEFICIENCY
     Dosage: 200 IU, QD
  6. CLONAZEPAM [Concomitant]
     Indication: SLEEP DISORDER
     Dosage: 0.5 MG, QHS
     Route: 048

REACTIONS (4)
  - LEUKOPENIA [None]
  - UPPER RESPIRATORY TRACT INFECTION [None]
  - NEUTROPENIA [None]
  - LIPOMA [None]
